FAERS Safety Report 9977520 (Version 2)
Quarter: 2014Q1

REPORT INFORMATION
  Report Type: Report from Study
  Country: US (occurrence: US)
  Receive Date: 20140306
  Receipt Date: 20140306
  Transmission Date: 20141002
  Serious: Yes (Hospitalization)
  Sender: FDA-Public Use
  Company Number: US-ABBVIE-13P-163-1141323-00

PATIENT
  Age: 49 Year
  Sex: Female
  Weight: 63.11 kg

DRUGS (4)
  1. HUMIRA [Suspect]
     Indication: PSORIATIC ARTHROPATHY
     Dates: start: 20130827
  2. PREDNISONE [Concomitant]
  3. PREDNISONE [Concomitant]
     Dates: start: 201308
  4. CELESTONE [Concomitant]
     Indication: PRODUCT USED FOR UNKNOWN INDICATION

REACTIONS (4)
  - Hospitalisation [Unknown]
  - Arthralgia [Unknown]
  - Rash [Unknown]
  - Psoriatic arthropathy [Unknown]
